FAERS Safety Report 15439653 (Version 5)
Quarter: 2020Q3

REPORT INFORMATION
  Report Type: Report from Study
  Country: FR (occurrence: FR)
  Receive Date: 20180928
  Receipt Date: 20200730
  Transmission Date: 20201102
  Serious: Yes (Other)
  Sender: FDA-Public Use
  Company Number: PHHY2018FR073413

PATIENT
  Sex: Male
  Weight: 87 kg

DRUGS (1)
  1. VOTRIENT [Suspect]
     Active Substance: PAZOPANIB HYDROCHLORIDE
     Indication: RENAL CANCER METASTATIC
     Dosage: 800 MG, QD
     Route: 048
     Dates: start: 20180709, end: 20180827

REACTIONS (17)
  - Faeces discoloured [Recovered/Resolved]
  - Gamma-glutamyltransferase increased [Unknown]
  - Blood bilirubin increased [Unknown]
  - Nausea [Recovered/Resolved]
  - Erythema [Recovered/Resolved]
  - Hepatocellular injury [Recovered/Resolved]
  - Asthenia [Recovered/Resolved]
  - Blood lactate dehydrogenase increased [Unknown]
  - Blood pressure increased [Recovered/Resolved]
  - Gastrointestinal sounds abnormal [Not Recovered/Not Resolved]
  - Dysgeusia [Recovered/Resolved]
  - Aspartate aminotransferase increased [Unknown]
  - Abdominal rigidity [Recovered/Resolved]
  - Abdominal rigidity [Unknown]
  - Blood alkaline phosphatase increased [Unknown]
  - Alanine aminotransferase increased [Unknown]
  - Epistaxis [Recovered/Resolved]

NARRATIVE: CASE EVENT DATE: 20180723
